FAERS Safety Report 7917100-1 (Version None)
Quarter: 2011Q4

REPORT INFORMATION
  Report Type: 
  Country: None (occurrence: None)
  Receive Date: 20111116
  Receipt Date: 20111107
  Transmission Date: 20120403
  Serious: Yes (Death, Other)
  Sender: FDA-Public Use
  Company Number: ES-COVIDIEN/TYCO HEALTHCARE/MALLINCKRODT-T201102100

PATIENT
  Age: 33 Year
  Sex: Female

DRUGS (3)
  1. EXALGO [Suspect]
     Indication: ANALGESIC THERAPY
     Dosage: 96 MG, ONCE EVERY 24 HOURS
     Route: 065
     Dates: start: 20110301
  2. FENTANYL [Suspect]
     Indication: ANALGESIC THERAPY
     Dosage: UNK
     Route: 060
     Dates: start: 20110301
  3. ACETAMINOPHEN [Suspect]
     Indication: ANALGESIC THERAPY
     Dosage: 1 G, ONCE EVERY 6 HOURS
     Route: 065
     Dates: start: 20110301

REACTIONS (2)
  - DISEASE PROGRESSION [None]
  - DYSPNOEA [None]
